FAERS Safety Report 8394090-1 (Version None)
Quarter: 2012Q2

REPORT INFORMATION
  Report Type: 
  Country: None (occurrence: None)
  Receive Date: 20120530
  Receipt Date: 20120521
  Transmission Date: 20120825
  Serious: Yes (Other)
  Sender: FDA-Public Use
  Company Number: BR-JNJFOC-20120516828

PATIENT
  Sex: Female
  Weight: 64 kg

DRUGS (3)
  1. REMICADE [Suspect]
     Indication: RHEUMATOID ARTHRITIS
     Route: 042
     Dates: start: 20100816
  2. PROLOPA [Concomitant]
     Indication: TREMOR
     Dosage: HALF TABLET
     Route: 065
     Dates: start: 20090101
  3. REMICADE [Suspect]
     Route: 042
     Dates: start: 20110901, end: 20110912

REACTIONS (3)
  - HERPES ZOSTER [None]
  - HYPERSENSITIVITY [None]
  - INFUSION RELATED REACTION [None]
